FAERS Safety Report 8906982 (Version 1)
Quarter: 2012Q4

REPORT INFORMATION
  Report Type: Report from Study
  Country: JP (occurrence: JP)
  Receive Date: 20121114
  Receipt Date: 20121114
  Transmission Date: 20130627
  Serious: Yes (Other)
  Sender: FDA-Public Use
  Company Number: JP-VERTEX PHARMACEUTICAL INC.-AE-2012-004898

PATIENT
  Age: 59 Year
  Sex: Female

DRUGS (8)
  1. VX-950 (TELAPREVIR) [Suspect]
     Indication: CHRONIC HEPATITIS C
     Dosage: 1500 mg, qd
     Route: 048
     Dates: start: 20120118, end: 20120409
  2. PEGINTERFERON ALFA-2B [Suspect]
     Indication: CHRONIC HEPATITIS C
     Dosage: 1.5 ?g/kg, qw
     Route: 058
     Dates: start: 20120118
  3. RIBAVIRIN [Suspect]
     Indication: CHRONIC HEPATITIS C
     Dosage: 600 mg, qd
     Route: 048
     Dates: start: 20120118
  4. LOXONIN [Suspect]
     Indication: MUSCULOSKELETAL PAIN
     Dosage: 100 mg, prn
     Route: 061
     Dates: end: 20120122
  5. GASTER [Concomitant]
     Dosage: 40 mg, qd
     Route: 048
     Dates: start: 20120120
  6. PURSENNID /00142207/ [Concomitant]
     Dosage: 12 mg, prn
     Route: 048
     Dates: start: 20120118
  7. SELBEX [Concomitant]
     Dosage: 150 mg, qd
     Route: 048
     Dates: start: 20120206
  8. ALLEGRA [Concomitant]
     Dosage: 60 mg, qd
     Route: 048
     Dates: start: 20120213

REACTIONS (2)
  - Pancytopenia [Not Recovered/Not Resolved]
  - White blood cell count decreased [Not Recovered/Not Resolved]
